FAERS Safety Report 19266268 (Version 2)
Quarter: 2021Q3

REPORT INFORMATION
  Report Type: Report from Study
  Country: AU (occurrence: AU)
  Receive Date: 20210518
  Receipt Date: 20210907
  Transmission Date: 20211014
  Serious: Yes (Hospitalization, Other)
  Sender: FDA-Public Use
  Company Number: AU-JNJFOC-20210525495

PATIENT
  Age: 36 Year
  Sex: Female
  Weight: 87 kg

DRUGS (1)
  1. REMICADE [Suspect]
     Active Substance: INFLIXIMAB
     Indication: CROHN^S DISEASE
     Route: 042
     Dates: start: 20210707

REACTIONS (5)
  - Abdominal pain [Recovered/Resolved]
  - Exposure during pregnancy [Unknown]
  - Oral herpes [Unknown]
  - Crohn^s disease [Unknown]
  - Gingival ulceration [Unknown]

NARRATIVE: CASE EVENT DATE: 20210829
